FAERS Safety Report 12225073 (Version 3)
Quarter: 2016Q2

REPORT INFORMATION
  Report Type: Spontaneous
  Country: IT (occurrence: IT)
  Receive Date: 20160331
  Receipt Date: 20160414
  Transmission Date: 20160815
  Serious: Yes (Hospitalization)
  Sender: FDA-Public Use
  Company Number: IT-TEVA-646620ACC

PATIENT
  Age: 26 Year
  Sex: Male

DRUGS (3)
  1. LITHIUM CARBONATE. [Suspect]
     Active Substance: LITHIUM CARBONATE
     Indication: DRUG ABUSE
     Route: 048
  2. DIAZEPAM. [Suspect]
     Active Substance: DIAZEPAM
     Indication: DRUG ABUSE
     Route: 048
  3. ABILIFY [Suspect]
     Active Substance: ARIPIPRAZOLE
     Indication: DRUG ABUSE
     Route: 048

REACTIONS (4)
  - Sopor [Recovering/Resolving]
  - Drug abuse [Recovering/Resolving]
  - Toxicity to various agents [Recovering/Resolving]
  - Bradyphrenia [Recovering/Resolving]

NARRATIVE: CASE EVENT DATE: 20160218
